FAERS Safety Report 21519578 (Version 3)
Quarter: 2022Q4

REPORT INFORMATION
  Report Type: Other
  Country: US (occurrence: None)
  Receive Date: 20221028
  Receipt Date: 20221104
  Transmission Date: 20230113
  Serious: No
  Sender: FDA-Public Use
  Company Number: US-ROCHE-3207153

PATIENT
  Age: 64 Year
  Sex: Male

DRUGS (1)
  1. OCREVUS [Suspect]
     Active Substance: OCRELIZUMAB
     Indication: Multiple sclerosis
     Dosage: 300 MG DAY 1, INITIAL DOSE, DAY 15 300MG, THEN 600MG ONCE IN 6 MONTHS.
     Route: 042

REACTIONS (2)
  - Mobility decreased [Unknown]
  - COVID-19 [Unknown]
